FAERS Safety Report 7783421-9 (Version None)
Quarter: 2011Q3

REPORT INFORMATION
  Report Type: 
  Country: None (occurrence: None)
  Receive Date: 20110928
  Receipt Date: 20110928
  Transmission Date: 20111222
  Serious: Yes (Hospitalization)
  Sender: FDA-Public Use
  Company Number: None

PATIENT
  Age: 76 Year
  Sex: Female
  Weight: 79 kg

DRUGS (1)
  1. TIGECYCLINE [Suspect]
     Indication: OSTEOMYELITIS
     Dosage: 50 MG
     Route: 042
     Dates: start: 20110818, end: 20110901

REACTIONS (1)
  - PANCREATITIS [None]
